FAERS Safety Report 20771852 (Version 1)
Quarter: 2022Q2

REPORT INFORMATION
  Report Type: Spontaneous
  Country: JP (occurrence: JP)
  Receive Date: 20220430
  Receipt Date: 20220430
  Transmission Date: 20220720
  Serious: Yes (Other)
  Sender: FDA-Public Use
  Company Number: JP-ALLERGAN-2213582US

PATIENT

DRUGS (2)
  1. URSODIOL [Suspect]
     Active Substance: URSODIOL
     Indication: Product used for unknown indication
     Dosage: 300 MG, BID
     Route: 048
  2. PEMAFIBRATE [Concomitant]
     Active Substance: PEMAFIBRATE

REACTIONS (2)
  - Cholelithotomy [Unknown]
  - Product administration error [Unknown]
